FAERS Safety Report 9648520 (Version 2)
Quarter: 2013Q4

REPORT INFORMATION
  Report Type: Spontaneous
  Country: SE (occurrence: SE)
  Receive Date: 20131028
  Receipt Date: 20131028
  Transmission Date: 20140711
  Serious: Yes (Other)
  Sender: FDA-Public Use
  Company Number: SE-NOVOPROD-377616

PATIENT
  Age: 27 Year
  Sex: Female

DRUGS (7)
  1. NOVORAPID FLEXPEN [Suspect]
     Indication: GESTATIONAL DIABETES
     Dosage: 12 IU, QD
     Route: 065
     Dates: start: 20130221
  2. NOVORAPID FLEXPEN [Suspect]
     Dosage: 24 IU, QD
     Route: 065
  3. INSULATARD FLEXPEN [Suspect]
     Indication: GESTATIONAL DIABETES
     Dosage: 6 U, QD (NIGHT)
     Route: 065
  4. INSULATARD FLEXPEN [Suspect]
     Dosage: 8 IU, QD
     Route: 065
  5. VITAMIN B12                        /00056201/ [Concomitant]
     Dosage: UNK
     Route: 065
  6. VITAMIN D                          /00107901/ [Concomitant]
     Dosage: UNK
     Route: 065
  7. CALCIUM [Concomitant]
     Dosage: UNK
     Route: 065

REACTIONS (3)
  - Uterine atony [Recovered/Resolved]
  - Device malfunction [Unknown]
  - Exposure during pregnancy [Unknown]
